FAERS Safety Report 24184706 (Version 3)
Quarter: 2024Q4

REPORT INFORMATION
  Report Type: Spontaneous
  Country: GB (occurrence: GB)
  Receive Date: 20240807
  Receipt Date: 20241015
  Transmission Date: 20250114
  Serious: Yes (Other)
  Sender: JAZZ
  Company Number: GB-JAZZ PHARMACEUTICALS-2024-GB-011954

PATIENT
  Sex: Female

DRUGS (1)
  1. XYREM [Suspect]
     Active Substance: SODIUM OXYBATE
     Indication: Cataplexy
     Dosage: UNK

REACTIONS (4)
  - Cataplexy [Unknown]
  - Somnolence [Unknown]
  - Product availability issue [Unknown]
  - Therapy interrupted [Unknown]
